FAERS Safety Report 9020364 (Version 1)
Quarter: 2013Q1

REPORT INFORMATION
  Report Type: Spontaneous
  Country: US (occurrence: US)
  Receive Date: 20130119
  Receipt Date: 20130119
  Transmission Date: 20140127
  Serious: No
  Sender: FDA-Public Use
  Company Number: US-ALLERGAN-1207018US

PATIENT
  Age: 43 None
  Sex: Female
  Weight: 52.15 kg

DRUGS (9)
  1. BOTOX COSMETIC [Suspect]
     Indication: SKIN WRINKLING
     Dosage: 18 UNITS, SINGLE
     Route: 030
     Dates: start: 20120512, end: 20120512
  2. BOTOX COSMETIC [Suspect]
     Indication: SKIN WRINKLING
     Dosage: 8 UNITS, UNK
     Dates: start: 20120512, end: 20120512
  3. BOTOX COSMETIC [Suspect]
     Indication: SKIN WRINKLING
     Dosage: 16 UNITS, SINGLE
     Dates: start: 20120512, end: 20120512
  4. BOTOX COSMETIC [Suspect]
     Dosage: UNK
     Dates: start: 20111202, end: 20111202
  5. BOTOX COSMETIC [Suspect]
     Dosage: UNK
     Dates: start: 20110802, end: 20110802
  6. BOTOX COSMETIC [Suspect]
     Dosage: UNK
     Dates: start: 20110521, end: 20110521
  7. BOTOX COSMETIC [Suspect]
     Dosage: UNK
     Dates: start: 20110319, end: 20110319
  8. BOTOX COSMETIC [Suspect]
     Dosage: UNK
     Dates: start: 20100818, end: 20100818
  9. BOTOX COSMETIC [Suspect]
     Dosage: UNK
     Dates: start: 20100421, end: 20100421

REACTIONS (6)
  - Arthralgia [Recovered/Resolved]
  - Arthralgia [Recovered/Resolved]
  - Pain in extremity [Recovered/Resolved]
  - Wrong technique in drug usage process [Unknown]
  - Headache [Recovered/Resolved]
  - Incorrect dose administered [Unknown]
